FAERS Safety Report 4441090-X (Version None)
Quarter: 2004Q3

REPORT INFORMATION
  Report Type: 
  Country: None (occurrence: None)
  Receive Date: 20040902
  Receipt Date: 20040902
  Transmission Date: 20050211
  Serious: Yes (Disabling)
  Sender: FDA-Public Use
  Company Number: None

PATIENT
  Sex: Male
  Weight: 91.173 kg

DRUGS (3)
  1. ZANAFLEX [Suspect]
     Indication: BACK PAIN
     Dosage: 8 MG TID - QID
     Dates: start: 20020801
  2. ZANAFLEX [Suspect]
     Indication: SCIATICA
     Dosage: 8 MG TID - QID
     Dates: start: 20020801
  3. ULTRACET [Concomitant]

REACTIONS (2)
  - DRUG INEFFECTIVE [None]
  - PHARMACEUTICAL PRODUCT COMPLAINT [None]
